FAERS Safety Report 4968528-3 (Version None)
Quarter: 2006Q2

REPORT INFORMATION
  Report Type: 
  Country: None (occurrence: None)
  Receive Date: 20060410
  Receipt Date: 20060406
  Transmission Date: 20061013
  Serious: Yes (Other)
  Sender: FDA-Public Use
  Company Number: DE-AVENTIS-200610977DE

PATIENT

DRUGS (1)
  1. CLEXANE [Suspect]
     Indication: SURGERY
     Route: 058
     Dates: start: 20060101

REACTIONS (1)
  - PULMONARY EMBOLISM [None]
